FAERS Safety Report 4374028-4 (Version None)
Quarter: 2004Q2

REPORT INFORMATION
  Report Type: 
  Country: None (occurrence: None)
  Receive Date: 20040607
  Receipt Date: 20040422
  Transmission Date: 20050107
  Serious: Yes (Hospitalization)
  Sender: FDA-Public Use
  Company Number: PHNU2004DE01605

PATIENT
  Age: 82 Year
  Sex: Female
  Weight: 70 kg

DRUGS (3)
  1. ZOMETA [Suspect]
     Indication: METASTASES TO BONE
     Dosage: 4 MG, ONCE/SINGLE
     Route: 042
     Dates: start: 20030616, end: 20030616
  2. ZOMETA [Suspect]
     Dosage: 4 MG, ONCE/SINGLE
     Route: 042
     Dates: start: 20040318, end: 20040318
  3. CHEMOTHERAPEUTICS,OTHER [Concomitant]
     Route: 065

REACTIONS (10)
  - ABDOMINAL PAIN [None]
  - ANASTOMOTIC COMPLICATION [None]
  - ARTIFICIAL ANUS [None]
  - COLITIS [None]
  - DIARRHOEA [None]
  - DIVERTICULAR PERFORATION [None]
  - INFLAMMATION [None]
  - INFUSION RELATED REACTION [None]
  - SIGMOIDECTOMY [None]
  - SURGERY [None]
